FAERS Safety Report 10101897 (Version 1)
Quarter: 2014Q2

REPORT INFORMATION
  Report Type: Spontaneous
  Country: DE (occurrence: DE)
  Receive Date: 20140424
  Receipt Date: 20140424
  Transmission Date: 20141212
  Serious: Yes (Other)
  Sender: FDA-Public Use
  Company Number: PHHY2014DE049105

PATIENT
  Age: 83 Year
  Sex: Male

DRUGS (6)
  1. ONBREZ [Suspect]
     Indication: CHRONIC OBSTRUCTIVE PULMONARY DISEASE
     Dosage: UNK
     Dates: end: 201101
  2. ONBREZ [Suspect]
     Indication: EMPHYSEMA
  3. ONBREZ [Suspect]
     Indication: ASTHMA
  4. ALVESCO [Concomitant]
     Dosage: UNK
  5. DIGIMERCK [Concomitant]
     Dosage: UNK
  6. SEVIKAR [Concomitant]
     Dosage: UNK

REACTIONS (5)
  - Circulatory collapse [Unknown]
  - Syncope [Unknown]
  - Heart rate irregular [Unknown]
  - Fatigue [Unknown]
  - Oedema peripheral [Unknown]
